FAERS Safety Report 6823993-1 (Version None)
Quarter: 2010Q3

REPORT INFORMATION
  Report Type: 
  Country: None (occurrence: None)
  Receive Date: 20100708
  Receipt Date: 20060924
  Transmission Date: 20110219
  Serious: No
  Sender: FDA-Public Use
  Company Number: US-PFIZER INC-2006116010

PATIENT
  Sex: Female
  Weight: 58.97 kg

DRUGS (22)
  1. CHANTIX [Suspect]
     Indication: EX-TOBACCO USER
     Dates: start: 20060901
  2. LIPITOR [Concomitant]
  3. CELEBREX [Concomitant]
  4. ESTRATEST [Concomitant]
  5. ALBUTEROL [Concomitant]
     Dosage: 2 PUFFS 4 TIMES DAILY
     Route: 055
  6. VALIUM [Concomitant]
  7. ALPRAZOLAM [Concomitant]
  8. ZOLOFT [Concomitant]
  9. NYSTATIN [Concomitant]
  10. NEXIUM [Concomitant]
  11. BACLOFEN [Concomitant]
  12. CARBAMAZEPINE [Concomitant]
  13. VITAMIN B-12 [Concomitant]
  14. IBANDRONATE SODIUM [Concomitant]
  15. XOPENEX [Concomitant]
  16. PROCHLORPERAZINE [Concomitant]
  17. LANTUS [Concomitant]
  18. HOMEOPATHIC PREPARATION [Concomitant]
  19. TPN [Concomitant]
  20. TYLENOL (CAPLET) [Concomitant]
  21. PREMARIN [Concomitant]
  22. OXYCONTIN [Concomitant]

REACTIONS (2)
  - HEADACHE [None]
  - NAUSEA [None]
